FAERS Safety Report 20950760 (Version 3)
Quarter: 2022Q2

REPORT INFORMATION
  Report Type: Spontaneous
  Country: US (occurrence: US)
  Receive Date: 20220613
  Receipt Date: 20220615
  Transmission Date: 20220721
  Serious: No
  Sender: FDA-Public Use
  Company Number: US-PFIZER INC-202200327802

PATIENT
  Age: 60 Year
  Sex: Male
  Weight: 117.93 kg

DRUGS (3)
  1. EPLERENONE [Suspect]
     Active Substance: EPLERENONE
     Indication: Polyuria
     Dosage: 25 MG, 1X/DAY
     Dates: start: 202201
  2. EPLERENONE [Suspect]
     Active Substance: EPLERENONE
     Indication: Hypertension
  3. SPIRONOLACTONE [Concomitant]
     Active Substance: SPIRONOLACTONE
     Dosage: 25 MG

REACTIONS (1)
  - Skin discolouration [Not Recovered/Not Resolved]
